FAERS Safety Report 7479573-0 (Version None)
Quarter: 2011Q2

REPORT INFORMATION
  Report Type: 
  Country: None (occurrence: None)
  Receive Date: 20110513
  Receipt Date: 20110504
  Transmission Date: 20111010
  Serious: No
  Sender: FDA-Public Use
  Company Number: US-B.I. PHARMACEUTICALS,INC./RIDGEFIELD-2011-BP-12990BP

PATIENT
  Sex: Female
  Weight: 166.6 kg

DRUGS (9)
  1. SIMVASTATIN [Concomitant]
     Dosage: 40 MG
     Route: 048
  2. HYDROCODONE BITARTRATE AND ACETAMINOPHEN [Concomitant]
     Route: 048
  3. AMLODIPINE BESYLATE [Concomitant]
     Dosage: 10 MG
     Route: 048
  4. LISINOPRIL AND HYDROCHLOROTHIAZIDE [Concomitant]
     Route: 048
  5. CYCLOBENZAPRINE [Concomitant]
     Dosage: 10 MG
     Route: 048
  6. COREG [Concomitant]
     Dosage: 12.5 MG
     Route: 048
  7. MELOXICAM [Suspect]
     Indication: ARTHRITIS
     Dosage: 15 MG
     Route: 048
  8. METFORMIN HCL [Concomitant]
     Dosage: 1700 MG
     Route: 048
  9. NPH INSULIN [Concomitant]
     Dosage: 70 U

REACTIONS (2)
  - RASH [None]
  - DRUG HYPERSENSITIVITY [None]
